FAERS Safety Report 20330256 (Version 3)
Quarter: 2022Q2

REPORT INFORMATION
  Report Type: Report from Study
  Country: JP (occurrence: JP)
  Receive Date: 20220113
  Receipt Date: 20220613
  Transmission Date: 20220721
  Serious: Yes (Life-Threatening, Hospitalization, Other)
  Sender: FDA-Public Use
  Company Number: None

PATIENT
  Age: 43 Year
  Sex: Male
  Weight: 102.2 kg

DRUGS (12)
  1. IVABRADINE [Suspect]
     Active Substance: IVABRADINE
     Indication: Cardiac failure chronic
     Dosage: 2.5 MG, BID
     Route: 048
     Dates: start: 20201030, end: 20201126
  2. IVABRADINE [Suspect]
     Active Substance: IVABRADINE
     Dosage: 5 MG, BID
     Route: 048
     Dates: start: 20201127, end: 20210104
  3. IVABRADINE [Suspect]
     Active Substance: IVABRADINE
     Dosage: 2.5 MG, BID
     Route: 048
     Dates: start: 20210105, end: 20210108
  4. IVABRADINE [Suspect]
     Active Substance: IVABRADINE
     Dosage: 5 MG, BID
     Route: 048
     Dates: start: 20210609
  5. AMIODARONE HYDROCHLORIDE [Concomitant]
     Active Substance: AMIODARONE HYDROCHLORIDE
     Indication: Product used for unknown indication
     Dosage: UNK
     Route: 048
  6. BISOPROLOL FUMARATE [Concomitant]
     Active Substance: BISOPROLOL FUMARATE
     Indication: Cardiac failure chronic
     Dosage: 2.5 MG, QD
     Route: 048
  7. IMIDAPRIL HYDROCHLORIDE [Concomitant]
     Active Substance: IMIDAPRIL HYDROCHLORIDE
     Indication: Cardiac failure chronic
     Dosage: UNK
     Route: 048
  8. SPIRONOLACTONE [Concomitant]
     Active Substance: SPIRONOLACTONE
     Indication: Cardiac failure chronic
     Dosage: UNK
     Route: 048
  9. TOLVAPTAN [Concomitant]
     Active Substance: TOLVAPTAN
     Indication: Cardiac failure chronic
     Dosage: UNK
     Route: 048
  10. PIMOBENDAN [Concomitant]
     Active Substance: PIMOBENDAN
     Indication: Cardiac failure chronic
     Dosage: UNK
     Route: 048
  11. DOCARPAMINE [Concomitant]
     Active Substance: DOCARPAMINE
     Indication: Cardiac failure chronic
     Dosage: UNK
     Route: 048
  12. AZOSEMIDE [Concomitant]
     Active Substance: AZOSEMIDE
     Indication: Cardiac failure chronic
     Dosage: UNK
     Route: 048

REACTIONS (4)
  - Hypokalaemia [Unknown]
  - Ventricular fibrillation [Recovered/Resolved]
  - Electrocardiogram QT prolonged [Recovered/Resolved]
  - Photopsia [Recovered/Resolved]

NARRATIVE: CASE EVENT DATE: 20201031
